FAERS Safety Report 8024451-1 (Version None)
Quarter: 2012Q1

REPORT INFORMATION
  Report Type: 
  Country: None (occurrence: None)
  Receive Date: 20120105
  Receipt Date: 20111228
  Transmission Date: 20120608
  Serious: Yes (Hospitalization)
  Sender: FDA-Public Use
  Company Number: JP-NOVOPROD-341170

PATIENT

DRUGS (5)
  1. LIVALO [Concomitant]
     Dosage: 1 MG, QD
     Route: 048
  2. VICTOZA [Suspect]
     Dosage: 0.6 MG, QD
     Route: 058
     Dates: start: 20101125
  3. VICTOZA [Suspect]
     Dosage: 0.9 MG, QD
     Route: 058
     Dates: start: 20101209
  4. AMARYL [Concomitant]
     Dosage: 4 MG, QD
     Route: 048
  5. VICTOZA [Suspect]
     Indication: DIABETES MELLITUS
     Dosage: 0.3 MG, QD
     Route: 058

REACTIONS (1)
  - ABDOMINAL WALL ABSCESS [None]
